FAERS Safety Report 25917346 (Version 2)
Quarter: 2025Q4

REPORT INFORMATION
  Report Type: Report from Study
  Country: GB (occurrence: GB)
  Receive Date: 20251014
  Receipt Date: 20251028
  Transmission Date: 20260117
  Serious: Yes (Other)
  Sender: ABBVIE
  Company Number: GB-ABBVIE-6497594

PATIENT
  Age: 77 Year
  Sex: Male

DRUGS (1)
  1. HUMIRA [Suspect]
     Active Substance: ADALIMUMAB
     Indication: Ankylosing spondylitis
     Dosage: STRENGTH: HUMIRA 40MG/0.4ML, DOSE FORM: SOLUTION FOR INJECTION PRE-FILLED PENS.?2 PRE-FILLED DISP...
     Route: 058

REACTIONS (6)
  - Limb operation [Recovering/Resolving]
  - Postoperative wound infection [Unknown]
  - Incision site discharge [Unknown]
  - Incision site swelling [Unknown]
  - Deafness [Unknown]
  - Blood sodium decreased [Unknown]

NARRATIVE: CASE EVENT DATE: 20250101
